FAERS Safety Report 9966248 (Version 1)
Quarter: 2014Q1

REPORT INFORMATION
  Report Type: Report from Study
  Country: US (occurrence: US)
  Receive Date: 20140305
  Receipt Date: 20140305
  Transmission Date: 20141002
  Serious: No
  Sender: FDA-Public Use
  Company Number: US-ABBVIE-13P-163-1123125-00

PATIENT
  Age: 58 Year
  Sex: Female

DRUGS (19)
  1. HUMIRA [Suspect]
     Indication: CROHN^S DISEASE
     Dates: start: 201303
  2. LOVAZA [Concomitant]
     Indication: CARDIAC DISORDER
  3. OMEGA 3 [Concomitant]
     Indication: MINERAL SUPPLEMENTATION
     Dosage: 2IN AM AND 2 IN PM DAILY
  4. MAGNESIUM OXIDE [Concomitant]
     Indication: PRODUCT USED FOR UNKNOWN INDICATION
     Dosage: 1 IN AM AND 1 IN PM
  5. VITAMIN B6 [Concomitant]
     Indication: VITAMIN SUPPLEMENTATION
     Dosage: 100 MILLIGRAMS DAILY
  6. ISONIAZID [Concomitant]
     Indication: ANTIBIOTIC PROPHYLAXIS
  7. PROTONIX [Concomitant]
     Indication: GASTROOESOPHAGEAL REFLUX DISEASE
     Dosage: 40 MILLIGRAMS DAILY
  8. VITAMIN D2 [Concomitant]
     Indication: VITAMIN D DECREASED
  9. IRON [Concomitant]
     Indication: MINERAL SUPPLEMENTATION
  10. AMLODIPINE BESYLATE [Concomitant]
     Indication: HYPERTENSION
  11. METOPROLOL [Concomitant]
     Indication: HYPERTENSION
  12. LASIX [Concomitant]
     Indication: FLUID RETENTION
  13. SODIUM BICARB [Concomitant]
     Indication: RENAL DISORDER
  14. ASPIRIN [Concomitant]
     Indication: CARDIOVASCULAR EVENT PROPHYLAXIS
  15. VITAMIN B12 [Concomitant]
     Indication: VITAMIN SUPPLEMENTATION
  16. GLYBURIDE [Concomitant]
     Indication: DIABETES MELLITUS
  17. SOMA [Concomitant]
     Indication: PRODUCT USED FOR UNKNOWN INDICATION
  18. OXYCODONE [Concomitant]
     Indication: PAIN
  19. XANAX [Concomitant]
     Indication: PAIN

REACTIONS (4)
  - Haematochezia [Not Recovered/Not Resolved]
  - Diarrhoea [Not Recovered/Not Resolved]
  - Abdominal pain [Not Recovered/Not Resolved]
  - Dehydration [Not Recovered/Not Resolved]
